FAERS Safety Report 20517285 (Version 2)
Quarter: 2022Q1

REPORT INFORMATION
  Report Type: Spontaneous
  Country: US (occurrence: US)
  Receive Date: 20220225
  Receipt Date: 20220310
  Transmission Date: 20220423
  Serious: No
  Sender: FDA-Public Use
  Company Number: US-ORGANON-O2202USA001770

PATIENT
  Age: 73 Year
  Sex: Female

DRUGS (3)
  1. ASMANEX [Suspect]
     Active Substance: MOMETASONE FUROATE
     Dosage: 4 PUFFS PER DAY (120 DOSE)
     Dates: start: 202112
  2. ASMANEX [Suspect]
     Active Substance: MOMETASONE FUROATE
     Dosage: 4 PUFFS PER DAY (120 DOSE)
     Dates: start: 202201
  3. ASMANEX [Suspect]
     Active Substance: MOMETASONE FUROATE
     Dosage: 4 PUFFS A DAY (120 DOSE)
     Dates: start: 202202

REACTIONS (8)
  - Device malfunction [Unknown]
  - Poor quality device used [Unknown]
  - Device malfunction [Unknown]
  - Poor quality device used [Unknown]
  - Device malfunction [Unknown]
  - Poor quality device used [Unknown]
  - Product dose omission issue [Unknown]
  - No adverse event [Unknown]

NARRATIVE: CASE EVENT DATE: 20211201
